FAERS Safety Report 9667890 (Version 2)
Quarter: 2013Q4

REPORT INFORMATION
  Report Type: Spontaneous
  Country: JP (occurrence: JP)
  Receive Date: 20131104
  Receipt Date: 20131121
  Transmission Date: 20140711
  Serious: Yes (Death, Other)
  Sender: FDA-Public Use
  Company Number: JP-BRISTOL-MYERS SQUIBB COMPANY-19721182

PATIENT
  Age: 69 Year
  Sex: Male
  Weight: 54.4 kg

DRUGS (14)
  1. PARAPLATIN INJ [Suspect]
     Indication: SMALL CELL LUNG CANCER
     Route: 041
     Dates: start: 20130920, end: 20130920
  2. IRINOTECAN HCL [Suspect]
     Dosage: INJ
     Route: 041
     Dates: start: 20130920, end: 20130920
  3. ALOXI [Concomitant]
     Route: 042
  4. DEXART [Concomitant]
     Dosage: INJ
     Route: 042
  5. VEEN-D [Concomitant]
     Route: 042
  6. CLARITH [Concomitant]
     Dosage: TAB
     Route: 048
  7. LOXONIN [Concomitant]
     Route: 048
  8. SELBEX [Concomitant]
     Route: 048
  9. MICARDIS [Concomitant]
     Dosage: TAB
     Route: 048
  10. MUCODYNE [Concomitant]
     Route: 048
  11. PRIMPERAN [Concomitant]
     Route: 048
  12. BUSCOPAN [Concomitant]
     Dosage: TAB
     Route: 048
  13. LOPEMIN [Concomitant]
     Route: 048
  14. TANNALBIN [Concomitant]

REACTIONS (4)
  - Disseminated intravascular coagulation [Fatal]
  - Enterocolitis [Fatal]
  - Neutropenia [Unknown]
  - Thrombocytopenia [Unknown]
